FAERS Safety Report 4747873-0 (Version None)
Quarter: 2005Q3

REPORT INFORMATION
  Report Type: 
  Country: None (occurrence: None)
  Receive Date: 20050817
  Receipt Date: 20050817
  Transmission Date: 20060218
  Serious: Yes (Life-Threatening, Hospitalization, Disabling)
  Sender: FDA-Public Use
  Company Number: None

PATIENT
  Age: 62 Year
  Sex: Male
  Weight: 93.441 kg

DRUGS (3)
  1. CELEBREX [Suspect]
     Indication: OSTEOARTHRITIS
     Dosage: ORAL
     Route: 048
  2. ALLOPURINOL [Concomitant]
  3. PROTONIX [Concomitant]

REACTIONS (3)
  - CEREBRAL ISCHAEMIA [None]
  - COORDINATION ABNORMAL [None]
  - HEMIPARESIS [None]
